FAERS Safety Report 4962503-0 (Version None)
Quarter: 2006Q1

REPORT INFORMATION
  Report Type: 
  Country: None (occurrence: None)
  Receive Date: 20060127
  Receipt Date: 20050310
  Transmission Date: 20060701
  Serious: Yes (Hospitalization)
  Sender: FDA-Public Use
  Company Number: 05-03-0379

PATIENT
  Age: 43 Year
  Sex: Male

DRUGS (1)
  1. CLOZAPINE [Suspect]
     Indication: SCHIZOPHRENIA
     Dosage: 450-650MG QD, ORAL
     Route: 048
     Dates: start: 19990701

REACTIONS (1)
  - DEPRESSION [None]
